FAERS Safety Report 18172259 (Version 2)
Quarter: 2020Q4

REPORT INFORMATION
  Report Type: Spontaneous
  Country: US (occurrence: US)
  Receive Date: 20200820
  Receipt Date: 20201116
  Transmission Date: 20210113
  Serious: No
  Sender: FDA-Public Use
  Company Number: US-HORIZON-BUP-0042-2020

PATIENT
  Age: 31 Year
  Sex: Female

DRUGS (1)
  1. BUPHENYL [Suspect]
     Active Substance: SODIUM PHENYLBUTYRATE
     Indication: ARGININOSUCCINATE SYNTHETASE DEFICIENCY
     Dosage: 7,500MG TABLETS 3 TIMES DAILY 3 SEPARATED DOSES; FU#2: 3500MG BY MOUTH FOUR TIMES DAILY
     Route: 050
     Dates: start: 20140612

REACTIONS (1)
  - Weight increased [Not Recovered/Not Resolved]
